FAERS Safety Report 13987410 (Version 3)
Quarter: 2018Q1

REPORT INFORMATION
  Report Type: Spontaneous
  Country: DE (occurrence: DE)
  Receive Date: 20170919
  Receipt Date: 20180207
  Transmission Date: 20180508
  Serious: Yes (Other)
  Sender: FDA-Public Use
  Company Number: DE-TEVA-802906GER

PATIENT
  Age: 82 Year
  Sex: Female
  Weight: 83 kg

DRUGS (9)
  1. HEPARIN-NATRIUM-25 000-RATIOPHARM [Suspect]
     Active Substance: HEPARIN SODIUM
     Dosage: 45000 IU (INTERNATIONAL UNIT) DAILY;
     Route: 065
     Dates: start: 20170811, end: 20170811
  2. ASS 100 [Concomitant]
     Active Substance: ASPIRIN
     Dosage: 0-1-0
  3. TRANEXAMIC ACID. [Suspect]
     Active Substance: TRANEXAMIC ACID
     Route: 065
     Dates: start: 20170811, end: 20170811
  4. AMLODIPIN 5 [Concomitant]
     Dosage: 1-0-0
  5. ZOPICLON [Concomitant]
     Active Substance: ZOPICLONE
  6. ALLOPURINOL 100 [Concomitant]
     Active Substance: ALLOPURINOL
     Dosage: 1-0-0
  7. SPIRONOLACTON 50 [Concomitant]
     Dosage: 1-0-0
  8. CITALOPRAM [Concomitant]
     Active Substance: CITALOPRAM HYDROBROMIDE
  9. TORASEMID [Concomitant]
     Active Substance: TORSEMIDE

REACTIONS (4)
  - Vasodilatation [Recovered/Resolved]
  - Hepatic failure [Unknown]
  - Renal failure [Unknown]
  - Haemoglobin increased [Recovered/Resolved]

NARRATIVE: CASE EVENT DATE: 20170811
